FAERS Safety Report 19123539 (Version 1)
Quarter: 2021Q2

REPORT INFORMATION
  Report Type: Spontaneous
  Country: GB (occurrence: GB)
  Receive Date: 20210412
  Receipt Date: 20210412
  Transmission Date: 20210717
  Serious: Yes (Hospitalization, Other)
  Sender: FDA-Public Use
  Company Number: GB-CLINIGEN GROUP PLC/ CLINIGEN HEALTHCARE LTD-GB-CLGN-21-0013195

PATIENT
  Age: 55 Year
  Sex: Male

DRUGS (27)
  1. METHYLPREDNISOLONE. [Suspect]
     Active Substance: METHYLPREDNISOLONE
     Indication: IMMUNOSUPPRESSANT DRUG THERAPY
     Route: 042
  2. PREDNISOLONE. [Suspect]
     Active Substance: PREDNISOLONE
     Indication: IMMUNOSUPPRESSION
  3. LEFLUNOMIDE. [Suspect]
     Active Substance: LEFLUNOMIDE
     Indication: ANTIVIRAL TREATMENT
     Dosage: SYSTEMIC; LONG?TERM ANTIVIRAL THERAPY
  4. SIROLIMUS. [Suspect]
     Active Substance: SIROLIMUS
     Indication: ANTIVIRAL TREATMENT
  5. VALGANCICLOVIR. [Suspect]
     Active Substance: VALGANCICLOVIR
     Indication: CYTOMEGALOVIRUS VIRAEMIA
     Route: 048
  6. FOSCARNET SODIUM. [Suspect]
     Active Substance: FOSCARNET SODIUM
     Indication: CYTOMEGALOVIRUS VIRAEMIA
     Route: 042
  7. ANTITHYMOCYTE IMMUNOGLOBULIN RABBIT [Suspect]
     Active Substance: LAPINE T-LYMPHOCYTE IMMUNE GLOBULIN
     Indication: IMMUNOSUPPRESSION
  8. CYTOMEGALOVIRUS IMMUNOGLOBULIN [Suspect]
     Active Substance: CYTOMEGALOVIRUS IMMUNE GLOBULIN INTRAVENOUS (HUMAN)
     Indication: CYTOMEGALOVIRUS CHORIORETINITIS
  9. LEFLUNOMIDE. [Suspect]
     Active Substance: LEFLUNOMIDE
     Indication: CYTOMEGALOVIRUS INFECTION REACTIVATION
     Dosage: SYSTEMIC; LONG?TERM ANTIVIRAL THERAPY
  10. VALGANCICLOVIR. [Suspect]
     Active Substance: VALGANCICLOVIR
  11. PREDNISOLONE. [Suspect]
     Active Substance: PREDNISOLONE
     Indication: IMMUNOSUPPRESSANT DRUG THERAPY
  12. GANCICLOVIR. [Suspect]
     Active Substance: GANCICLOVIR
  13. TACROLIMUS. [Suspect]
     Active Substance: TACROLIMUS
     Indication: ANTIVIRAL TREATMENT
     Route: 048
  14. CICLOSPORIN [Suspect]
     Active Substance: CYCLOSPORINE
     Indication: IMMUNOSUPPRESSANT DRUG THERAPY
     Dosage: UNK
  15. CYTOMEGALOVIRUS IMMUNOGLOBULIN [Suspect]
     Active Substance: CYTOMEGALOVIRUS IMMUNE GLOBULIN INTRAVENOUS (HUMAN)
     Indication: CYTOMEGALOVIRUS INFECTION REACTIVATION
  16. PREDNISOLONE. [Suspect]
     Active Substance: PREDNISOLONE
     Indication: ANTIVIRAL TREATMENT
  17. GANCICLOVIR. [Suspect]
     Active Substance: GANCICLOVIR
     Indication: CYTOMEGALOVIRUS CHORIORETINITIS
     Route: 048
  18. GANCICLOVIR. [Suspect]
     Active Substance: GANCICLOVIR
     Dosage: LEFT EYE INTRAVITREAL (2 MG/0.1 ML)
     Route: 031
  19. TACROLIMUS. [Suspect]
     Active Substance: TACROLIMUS
     Indication: TRANSPLANT REJECTION
  20. FOSCARNET SODIUM. [Suspect]
     Active Substance: FOSCARNET SODIUM
     Route: 042
  21. AZATHIOPRINE. [Suspect]
     Active Substance: AZATHIOPRINE
     Indication: IMMUNOSUPPRESSION
     Dosage: UNK
     Route: 065
  22. CICLOSPORIN [Suspect]
     Active Substance: CYCLOSPORINE
     Indication: IMMUNOSUPPRESSION
     Dosage: UNK
  23. TACROLIMUS. [Suspect]
     Active Substance: TACROLIMUS
     Indication: IMMUNOSUPPRESSANT DRUG THERAPY
     Route: 048
  24. FOSCARNET SODIUM. [Suspect]
     Active Substance: FOSCARNET SODIUM
     Route: 031
  25. GANCICLOVIR. [Suspect]
     Active Substance: GANCICLOVIR
     Route: 042
  26. CYTOMEGALOVIRUS IMMUNOGLOBULIN [Suspect]
     Active Substance: CYTOMEGALOVIRUS IMMUNE GLOBULIN INTRAVENOUS (HUMAN)
     Indication: IMMUNOSUPPRESSANT DRUG THERAPY
     Dosage: UNK
  27. GANCICLOVIR. [Suspect]
     Active Substance: GANCICLOVIR
     Dosage: UNK
     Route: 042

REACTIONS (12)
  - Pneumonia cytomegaloviral [Recovered/Resolved]
  - Cytomegalovirus chorioretinitis [Recovered/Resolved]
  - Product use issue [Unknown]
  - Retinal scar [Recovered/Resolved]
  - Nephropathy toxic [Recovered/Resolved]
  - Cytomegalovirus infection reactivation [Recovered/Resolved]
  - Cytomegalovirus viraemia [Recovered/Resolved]
  - Retinal detachment [Recovered/Resolved]
  - Renal impairment [Recovered/Resolved]
  - Visual impairment [Not Recovered/Not Resolved]
  - Off label use [Unknown]
  - Drug resistance [Unknown]
